FAERS Safety Report 18904524 (Version 1)
Quarter: 2021Q1

REPORT INFORMATION
  Report Type: Spontaneous
  Country: US (occurrence: US)
  Receive Date: 20210217
  Receipt Date: 20210217
  Transmission Date: 20210420
  Serious: No
  Sender: FDA-Public Use
  Company Number: None

PATIENT
  Age: 71 Year
  Sex: Male
  Weight: 75.8 kg

DRUGS (18)
  1. ASPIRIN EC 81MG DAILY [Concomitant]
     Dates: start: 20210207, end: 20210211
  2. HYDRALAZINE 25?50MG BID [Concomitant]
     Dates: start: 20210207, end: 20210211
  3. AZITHROMYCIN 500MG IV DAILY [Concomitant]
     Dates: start: 20210206, end: 20210206
  4. CEFTRIAXONE 1G IV DAILY [Concomitant]
     Dates: start: 20210206, end: 20210206
  5. CLOPIDOGREL [Concomitant]
     Active Substance: CLOPIDOGREL BISULFATE
     Dates: start: 20210207, end: 20210211
  6. LABETALOL 100MG IV TO PO BID [Concomitant]
     Dates: start: 20110206, end: 20210211
  7. ATORVASTATIN 40MG QHS [Concomitant]
     Dates: start: 20210207, end: 20210211
  8. BENZONATATE 200MG PO Q8H PRN [Concomitant]
     Dates: start: 20210208, end: 20210211
  9. CLONIDINE 0.1MG BID [Concomitant]
     Dates: start: 20210207, end: 20210211
  10. DEXAMETHASONE 6MG PO DAILY [Concomitant]
     Active Substance: DEXAMETHASONE
     Dates: start: 20210206, end: 20210211
  11. INSULIN LISPRO SSI 4/D [Concomitant]
     Dates: start: 20210207, end: 20210211
  12. OSELTRAMIVIR 309MG BID [Concomitant]
     Dates: start: 20210206, end: 20210206
  13. ALBUTEROL 2 PUFF INH 4X/DAY [Concomitant]
     Dates: start: 20210207, end: 20210211
  14. REMDESIVIR. [Suspect]
     Active Substance: REMDESIVIR
     Indication: COVID-19 PNEUMONIA
     Dosage: ?          OTHER FREQUENCY:200MG X1, 100MG/D;?
     Route: 042
     Dates: start: 20210207, end: 20210208
  15. ENOXAPARIN 30MG SUBQ Q12H [Concomitant]
     Dates: start: 20210206, end: 20210211
  16. GUAIFENESIN DM 100/10MG 5ML PO Q4H PRN COUGH [Concomitant]
     Dates: start: 20210206, end: 20210211
  17. LANTUS PER PHARMACY PROTOCOL [Concomitant]
     Dates: start: 20210207, end: 20210211
  18. AMLODIPINE 5MG DAILY [Concomitant]
     Dates: start: 20210207, end: 20210211

REACTIONS (2)
  - Creatinine renal clearance decreased [None]
  - Blood creatinine increased [None]

NARRATIVE: CASE EVENT DATE: 20210209
